FAERS Safety Report 12253078 (Version 1)
Quarter: 2016Q2

REPORT INFORMATION
  Report Type: Spontaneous
  Country: FR (occurrence: FR)
  Receive Date: 20160411
  Receipt Date: 20160411
  Transmission Date: 20160815
  Serious: Yes (Hospitalization, Other)
  Sender: FDA-Public Use
  Company Number: FR-PFIZER INC-2016193094

PATIENT
  Age: 77 Year
  Sex: Female

DRUGS (4)
  1. COUMADINE [Concomitant]
     Active Substance: WARFARIN SODIUM
  2. PARACETAMOL [Concomitant]
     Active Substance: ACETAMINOPHEN
  3. MIANSERINE [Suspect]
     Active Substance: MIANSERIN HYDROCHLORIDE
     Dosage: 30 MG, 1X/DAY
     Route: 048
     Dates: start: 20160106, end: 20160219
  4. LYRICA [Suspect]
     Active Substance: PREGABALIN
     Dosage: 50 MG, 2X/DAY
     Route: 048
     Dates: start: 20160203, end: 20160219

REACTIONS (3)
  - Agranulocytosis [Recovered/Resolved]
  - Septic shock [Unknown]
  - Pseudomonas infection [Unknown]

NARRATIVE: CASE EVENT DATE: 20160219
